FAERS Safety Report 5726455-8 (Version None)
Quarter: 2008Q2

REPORT INFORMATION
  Report Type: 
  Country: None (occurrence: None)
  Receive Date: 20080502
  Receipt Date: 20080424
  Transmission Date: 20081010
  Serious: Yes (Hospitalization)
  Sender: FDA-Public Use
  Company Number: B0518404A

PATIENT
  Age: 21 Year
  Sex: Male

DRUGS (3)
  1. MALARONE [Suspect]
     Indication: MALARIA PROPHYLAXIS
     Route: 048
     Dates: start: 20080313, end: 20080326
  2. ASACOL [Concomitant]
  3. URSO FALK [Concomitant]

REACTIONS (3)
  - FATIGUE [None]
  - JAUNDICE [None]
  - PRURITUS [None]
